FAERS Safety Report 8434111-0 (Version None)
Quarter: 2012Q2

REPORT INFORMATION
  Report Type: 
  Country: None (occurrence: None)
  Receive Date: 20120613
  Receipt Date: 20120601
  Transmission Date: 20120825
  Serious: No
  Sender: FDA-Public Use
  Company Number: US-ASTRAZENECA-2012SE36970

PATIENT
  Age: 39 Year
  Sex: Female
  Weight: 49 kg

DRUGS (10)
  1. SEROQUEL [Suspect]
     Indication: ANXIETY DISORDER
     Route: 048
     Dates: start: 20050101
  2. ZESTRIL [Suspect]
     Route: 048
  3. LYRICA [Concomitant]
     Indication: FIBROMYALGIA
  4. SEROQUEL [Suspect]
     Indication: BIPOLAR DISORDER
     Route: 048
     Dates: start: 20050101
  5. PROMETHAZINE [Concomitant]
     Indication: NAUSEA
  6. SEROQUEL [Suspect]
     Indication: OBSESSIVE-COMPULSIVE DISORDER
     Route: 048
     Dates: start: 20050101
  7. LYRICA [Concomitant]
     Indication: ARNOLD-CHIARI MALFORMATION
  8. CLONAZEPAM [Concomitant]
  9. TRAMADOL HCL [Concomitant]
     Indication: PAIN
  10. SEROQUEL [Suspect]
     Indication: POST-TRAUMATIC STRESS DISORDER
     Route: 048
     Dates: start: 20050101

REACTIONS (4)
  - HALLUCINATION, AUDITORY [None]
  - DRUG DOSE OMISSION [None]
  - ANXIETY [None]
  - FIBROMYALGIA [None]
